FAERS Safety Report 18215155 (Version 1)
Quarter: 2020Q3

REPORT INFORMATION
  Report Type: Spontaneous
  Country: RO (occurrence: RO)
  Receive Date: 20200831
  Receipt Date: 20200831
  Transmission Date: 20201103
  Serious: Yes (Death)
  Sender: FDA-Public Use
  Company Number: RO-ANIPHARMA-2020-RO-000010

PATIENT
  Age: 44 Year
  Sex: Male

DRUGS (1)
  1. AMINOPHYLLINE TABLETS (NON?SPECIFIC) [Suspect]
     Active Substance: AMINOPHYLLINE
     Indication: PRODUCT USED FOR UNKNOWN INDICATION

REACTIONS (4)
  - Myocarditis [Fatal]
  - Toxicity to various agents [Fatal]
  - Nephropathy toxic [Fatal]
  - Hepatotoxicity [Fatal]
